FAERS Safety Report 4431898-9 (Version None)
Quarter: 2004Q3

REPORT INFORMATION
  Report Type: 
  Country: None (occurrence: None)
  Receive Date: 20040818
  Receipt Date: 20040730
  Transmission Date: 20050211
  Serious: Yes (Hospitalization)
  Sender: FDA-Public Use
  Company Number: MEDI-0002161

PATIENT

DRUGS (2)
  1. ETHYOL [Suspect]
     Indication: RADIOTHERAPY
     Dosage: SUBCUTANEOUS
     Route: 058
  2. RADIATION THERAPY [Concomitant]

REACTIONS (5)
  - ASTHENIA [None]
  - CHILLS [None]
  - DYSPNOEA [None]
  - INJECTION SITE REACTION [None]
  - PYREXIA [None]
